FAERS Safety Report 10602660 (Version 5)
Quarter: 2015Q1

REPORT INFORMATION
  Report Type: Spontaneous
  Country: DE (occurrence: DE)
  Receive Date: 20141124
  Receipt Date: 20150115
  Transmission Date: 20150720
  Serious: Yes (Other)
  Sender: FDA-Public Use
  Company Number: DE-PFIZER INC-2014282826

PATIENT
  Age: 23 Year
  Sex: Female
  Weight: 42 kg

DRUGS (3)
  1. DEPO-CLINOVIR [Suspect]
     Active Substance: MEDROXYPROGESTERONE ACETATE
     Indication: CONTRACEPTION
     Dosage: 1 DF, SINGLE, SYRINGE
     Route: 030
     Dates: start: 20140402, end: 20140402
  2. DEPO-CLINOVIR [Suspect]
     Active Substance: MEDROXYPROGESTERONE ACETATE
     Dosage: 1 DF, SINGLE, SYRINGE
     Route: 030
     Dates: start: 20140618, end: 20140618
  3. DEPO-CLINOVIR [Suspect]
     Active Substance: MEDROXYPROGESTERONE ACETATE
     Dosage: 1 DF, SINGLE, SYRINGE
     Route: 030
     Dates: start: 20140909, end: 20140909

REACTIONS (4)
  - Unintended pregnancy [Unknown]
  - Ovarian cyst [Unknown]
  - Drug ineffective [Unknown]
  - Amenorrhoea [Unknown]

NARRATIVE: CASE EVENT DATE: 201404
